FAERS Safety Report 7631473-9 (Version None)
Quarter: 2011Q3

REPORT INFORMATION
  Report Type: 
  Country: None (occurrence: None)
  Receive Date: 20110725
  Receipt Date: 20110408
  Transmission Date: 20111222
  Serious: Yes (Death, Hospitalization)
  Sender: FDA-Public Use
  Company Number: PHHY2011GB29170

PATIENT
  Age: 18 Year
  Sex: Male

DRUGS (7)
  1. VINORELBINE [Suspect]
     Indication: LUNG ADENOCARCINOMA
  2. ERLOTINIB HYDROCHLORIDE [Suspect]
     Indication: LUNG ADENOCARCINOMA
  3. PACLITAXEL + CARBOPLATIN [Suspect]
     Indication: LUNG ADENOCARCINOMA
  4. GEMCITABINE [Suspect]
     Indication: LUNG ADENOCARCINOMA
     Dosage: 1250 MG/M2, UNK
  5. CISPLATIN [Suspect]
     Indication: LUNG ADENOCARCINOMA
     Dosage: 80 MG/M2, UNK
  6. ANALGESICS [Concomitant]
  7. DOCETAXEL [Suspect]
     Indication: LUNG ADENOCARCINOMA

REACTIONS (7)
  - NEOPLASM MALIGNANT [None]
  - HYPERTROPHIC OSTEOARTHROPATHY [None]
  - PLEURITIC PAIN [None]
  - THERAPEUTIC RESPONSE DECREASED [None]
  - JOINT SWELLING [None]
  - HYPERSENSITIVITY [None]
  - ARTHRALGIA [None]
